FAERS Safety Report 8095009 (Version 2)
Quarter: 2012Q4

REPORT INFORMATION
  Report Type: 
  Country: US (occurrence: US)
  Receive Date: 20110817
  Receipt Date: 20121012
  Transmission Date: 20130627
  Serious: Yes (Other)
  Sender: FDA-Public Use
  Company Number: US-ASTRAZENECA-2010SE26994

PATIENT
  Age: 58 Year
  Sex: Male

DRUGS (1)
  1. NEXIUM [Suspect]
     Route: 048

REACTIONS (6)
  - Adverse event [Unknown]
  - Accident [Unknown]
  - Pneumothorax [Unknown]
  - Pneumonia [Unknown]
  - Gastric disorder [Unknown]
  - Drug dose omission [Unknown]
